FAERS Safety Report 9909559 (Version 3)
Quarter: 2014Q2

REPORT INFORMATION
  Report Type: Spontaneous
  Country: AR (occurrence: AR)
  Receive Date: 20140219
  Receipt Date: 20140527
  Transmission Date: 20141212
  Serious: Yes (Other)
  Sender: FDA-Public Use
  Company Number: AR-PFIZER INC-2014045941

PATIENT
  Age: 66 Year
  Sex: Female

DRUGS (1)
  1. INLYTA [Suspect]
     Indication: RENAL CANCER
     Dosage: 10 MG, 1X/DAY
     Dates: start: 20131022

REACTIONS (2)
  - Ocular hypertension [Not Recovered/Not Resolved]
  - Glaucoma [Not Recovered/Not Resolved]
